FAERS Safety Report 9167056 (Version 3)
Quarter: 2014Q3

REPORT INFORMATION
  Report Type: Spontaneous
  Country: US (occurrence: US)
  Receive Date: 20130318
  Receipt Date: 20140717
  Transmission Date: 20150326
  Serious: Yes (Hospitalization)
  Sender: FDA-Public Use
  Company Number: US-009507513-1303USA007228

PATIENT
  Age: 53 Year
  Sex: Male
  Weight: 58.96 kg

DRUGS (4)
  1. THIAMINE [Concomitant]
     Active Substance: THIAMINE
     Dosage: 100 MG, QD
  2. SAPHRIS [Suspect]
     Active Substance: ASENAPINE MALEATE
     Indication: PSYCHOTIC DISORDER
     Dosage: 5 MG, BID
     Route: 060
     Dates: start: 20121223, end: 20121226
  3. VITAMINS (UNSPECIFIED) [Concomitant]
     Active Substance: VITAMINS
  4. SAPHRIS [Suspect]
     Active Substance: ASENAPINE MALEATE
     Dosage: 10 MG, HS
     Route: 048
     Dates: start: 20121227, end: 20121229

REACTIONS (1)
  - Rash [Recovering/Resolving]

NARRATIVE: CASE EVENT DATE: 20121229
